FAERS Safety Report 11780595 (Version 1)
Quarter: 2015Q4

REPORT INFORMATION
  Report Type: Spontaneous
  Country: US (occurrence: US)
  Receive Date: 20151126
  Receipt Date: 20151126
  Transmission Date: 20160305
  Serious: No
  Sender: FDA-Public Use
  Company Number: US-B.I. PHARMACEUTICALS,INC./RIDGEFIELD-2015-BI-63867BP

PATIENT
  Age: 77 Year
  Sex: Female
  Weight: 91 kg

DRUGS (1)
  1. OFEV [Suspect]
     Active Substance: NINTEDANIB
     Indication: IDIOPATHIC PULMONARY FIBROSIS
     Dosage: 50 MG
     Route: 048
     Dates: start: 201503

REACTIONS (5)
  - Cough [Unknown]
  - Pyrexia [Recovered/Resolved]
  - Choking [Recovered/Resolved]
  - Myalgia [Unknown]
  - Atrial fibrillation [Unknown]

NARRATIVE: CASE EVENT DATE: 20151008
